FAERS Safety Report 7439384-9 (Version None)
Quarter: 2011Q2

REPORT INFORMATION
  Report Type: 
  Country: None (occurrence: None)
  Receive Date: 20110421
  Receipt Date: 20110421
  Transmission Date: 20111010
  Serious: Yes (Other)
  Sender: FDA-Public Use
  Company Number: None

PATIENT
  Sex: Male
  Weight: 74.3899 kg

DRUGS (2)
  1. PRADAXA [Suspect]
     Indication: TRANSIENT ISCHAEMIC ATTACK
     Dosage: 150 MGM ONCE DAILY PO
     Route: 048
     Dates: start: 20101201, end: 20110218
  2. PRADAXA [Suspect]
     Indication: ATRIAL FIBRILLATION
     Dosage: 150 MGM ONCE DAILY PO
     Route: 048
     Dates: start: 20101201, end: 20110218

REACTIONS (3)
  - BURNING SENSATION [None]
  - OESOPHAGEAL IRRITATION [None]
  - ODYNOPHAGIA [None]
